FAERS Safety Report 4738647-5 (Version None)
Quarter: 2005Q3

REPORT INFORMATION
  Report Type: 
  Country: None (occurrence: None)
  Receive Date: 20050803
  Receipt Date: 20050718
  Transmission Date: 20060218
  Serious: Yes (Death, Hospitalization)
  Sender: FDA-Public Use
  Company Number: EWC050644337

PATIENT
  Age: 60 Year
  Sex: Female
  Weight: 71 kg

DRUGS (10)
  1. ALIMTA [Suspect]
     Indication: NON-SMALL CELL LUNG CANCER
     Dosage: 500 MG/1 CYCLE WEEK
     Dates: start: 20050526
  2. CISPLATIN [Suspect]
     Indication: NON-SMALL CELL LUNG CANCER
     Dosage: 75 MG/1 CYCLE WEEK
     Dates: start: 20050526, end: 20050526
  3. FOLIC ACID [Concomitant]
  4. VITAMIN B-12 [Concomitant]
  5. ENALAPRIL MALEATE AND HYDROCHLOROTHIAZIDE [Concomitant]
  6. BETALOC ZOK (METOPROLOL SUCCINATE) [Concomitant]
  7. XANAX [Concomitant]
  8. NITROMINT (GLYCERYL TRINITRATE) [Concomitant]
  9. DHC (DIHYDROCODEINE BITARTRATE) [Concomitant]
  10. LESCOL (FLUVASTATIN      /01224501/) [Concomitant]

REACTIONS (21)
  - BLOOD GLUCOSE INCREASED [None]
  - BLOOD LACTATE DEHYDROGENASE INCREASED [None]
  - BLOOD POTASSIUM DECREASED [None]
  - BLOOD SODIUM DECREASED [None]
  - BRAIN DAMAGE [None]
  - BRONCHOPNEUMONIA [None]
  - CEREBRAL ISCHAEMIA [None]
  - CEREBROVASCULAR ACCIDENT [None]
  - CEREBROVASCULAR DISORDER [None]
  - COMA [None]
  - HEADACHE [None]
  - HYDRONEPHROSIS [None]
  - INTRACRANIAL PRESSURE INCREASED [None]
  - METASTASES TO CENTRAL NERVOUS SYSTEM [None]
  - PARAESTHESIA [None]
  - PETECHIAE [None]
  - PLATELET COUNT DECREASED [None]
  - PNEUMONIA [None]
  - PYELONEPHRITIS [None]
  - SEPSIS [None]
  - VOMITING [None]
